FAERS Safety Report 13503278 (Version 1)
Quarter: 2017Q2

REPORT INFORMATION
  Report Type: Spontaneous
  Country: US (occurrence: US)
  Receive Date: 20170502
  Receipt Date: 20170502
  Transmission Date: 20170830
  Serious: No
  Sender: FDA-Public Use
  Company Number: US-PFIZER INC-2017190486

PATIENT
  Age: 17 Year
  Sex: Male
  Weight: 61.22 kg

DRUGS (1)
  1. ZOLOFT [Suspect]
     Active Substance: SERTRALINE HYDROCHLORIDE
     Indication: GENERALISED ANXIETY DISORDER
     Dosage: 100 MG, UNK

REACTIONS (2)
  - Product use in unapproved indication [Unknown]
  - Insomnia [Unknown]
